FAERS Safety Report 25845352 (Version 1)
Quarter: 2025Q3

REPORT INFORMATION
  Report Type: Spontaneous
  Country: GB (occurrence: GB)
  Receive Date: 20250925
  Receipt Date: 20250925
  Transmission Date: 20251020
  Serious: Yes (Death, Life-Threatening, Other)
  Sender: ALKEM
  Company Number: GB-ALKEM LABORATORIES LIMITED-GB-ALKEM-2025-10233

PATIENT
  Age: 8 Decade
  Sex: Male

DRUGS (1)
  1. CAPECITABINE [Suspect]
     Active Substance: CAPECITABINE
     Indication: Colon cancer stage II
     Dosage: 2500 MILLIGRAM, BID (1000MG/M2)
     Route: 065
     Dates: start: 20221018

REACTIONS (2)
  - Intestinal ischaemia [Fatal]
  - Enterocolitis [Fatal]
